FAERS Safety Report 13377361 (Version 1)
Quarter: 2017Q1

REPORT INFORMATION
  Report Type: Spontaneous
  Country: US (occurrence: US)
  Receive Date: 20170328
  Receipt Date: 20170328
  Transmission Date: 20170429
  Serious: Yes (Hospitalization)
  Sender: FDA-Public Use
  Company Number: None

PATIENT
  Age: 60 Year
  Sex: Male

DRUGS (2)
  1. HARVONI [Suspect]
     Active Substance: LEDIPASVIR\SOFOSBUVIR
     Indication: HEPATITIS C
     Dosage: DOSE AMOUNT - 90-400 MG QD, PO?
     Route: 048
     Dates: start: 20170222
  2. RIBAVIRIN 200 MG CAPSULES [Suspect]
     Active Substance: RIBAVIRIN
     Indication: HEPATITIS C
     Dosage: DOSE AMOUNT - 400 MG QAM AND 600 MG QPM?FREQUENCY - QAM AND QPM, PO
     Route: 048
     Dates: start: 20170222

REACTIONS (1)
  - Influenza [None]

NARRATIVE: CASE EVENT DATE: 20170311
